FAERS Safety Report 13679374 (Version 5)
Quarter: 2017Q4

REPORT INFORMATION
  Report Type: Report from Study
  Country: US (occurrence: US)
  Receive Date: 20170622
  Receipt Date: 20171005
  Transmission Date: 20180320
  Serious: Yes (Other)
  Sender: FDA-Public Use
  Company Number: US-VIFOR (INTERNATIONAL) INC.-VIT-2017-06380

PATIENT
  Sex: Female
  Weight: 63.11 kg

DRUGS (16)
  1. JAKAFI [Concomitant]
     Active Substance: RUXOLITINIB
  2. AMLODIPINE [Concomitant]
     Active Substance: AMLODIPINE BESYLATE
  3. COLECALCIFEROL [Concomitant]
     Active Substance: CHOLECALCIFEROL
  4. FERROUS SULFATE. [Concomitant]
     Active Substance: FERROUS SULFATE
  5. VITAMINS NOS [Concomitant]
     Active Substance: VITAMINS
  6. LOSARTAN. [Concomitant]
     Active Substance: LOSARTAN
  7. RENVELA [Concomitant]
     Active Substance: SEVELAMER CARBONATE
  8. ULORIC [Concomitant]
     Active Substance: FEBUXOSTAT
  9. TEMAZEPAM. [Concomitant]
     Active Substance: TEMAZEPAM
  10. WARFARIN [Concomitant]
     Active Substance: WARFARIN
  11. METFORMIN [Concomitant]
     Active Substance: METFORMIN HYDROCHLORIDE
  12. VELTASSA [Suspect]
     Active Substance: PATIROMER
     Dates: start: 201703
  13. CALCIUM [Concomitant]
     Active Substance: CALCIUM
  14. VELTASSA [Suspect]
     Active Substance: PATIROMER
     Indication: HYPERKALAEMIA
     Route: 048
     Dates: start: 20170421
  15. LEVOTHYROXINE. [Concomitant]
     Active Substance: LEVOTHYROXINE
  16. ACETYLSALICYLIC ACID [Concomitant]
     Active Substance: ASPIRIN

REACTIONS (9)
  - Hypoaesthesia [Unknown]
  - Thrombosis [Unknown]
  - Skin discolouration [Unknown]
  - Nasopharyngitis [Not Recovered/Not Resolved]
  - Limb discomfort [Unknown]
  - Hypertension [Not Recovered/Not Resolved]
  - Peripheral swelling [Recovered/Resolved]
  - Pain in extremity [Unknown]
  - Palpitations [Not Recovered/Not Resolved]

NARRATIVE: CASE EVENT DATE: 2017
